FAERS Safety Report 8973909 (Version 3)
Quarter: 2013Q1

REPORT INFORMATION
  Report Type: Spontaneous
  Country: UA (occurrence: UA)
  Receive Date: 20121218
  Receipt Date: 20130121
  Transmission Date: 20140127
  Serious: Yes (Other)
  Sender: FDA-Public Use
  Company Number: UA-GLAXOSMITHKLINE-B0852459A

PATIENT
  Age: 93 Year
  Sex: Female

DRUGS (1)
  1. SERETIDE DISKUS [Suspect]
     Indication: ASTHMA
     Route: 065
     Dates: start: 20121126, end: 20121203

REACTIONS (4)
  - Tachycardia [Recovered/Resolved]
  - Asthma [Recovered/Resolved]
  - Drug administration error [Unknown]
  - Product quality issue [Unknown]
